FAERS Safety Report 6231666-1 (Version None)
Quarter: 2009Q2

REPORT INFORMATION
  Report Type: 
  Country: None (occurrence: None)
  Receive Date: 20090616
  Receipt Date: 20090609
  Transmission Date: 20091009
  Serious: Yes (Hospitalization)
  Sender: FDA-Public Use
  Company Number: BR-MERCK-0905BRA00005

PATIENT

DRUGS (10)
  1. ISENTRESS [Suspect]
     Indication: ANTIRETROVIRAL THERAPY
     Route: 065
     Dates: start: 20080911
  2. ISENTRESS [Suspect]
     Route: 065
     Dates: start: 20080813, end: 20080826
  3. DARUNAVIR AND RITONAVIR [Concomitant]
     Indication: ANTIRETROVIRAL THERAPY
     Route: 065
     Dates: start: 20080911
  4. DARUNAVIR AND RITONAVIR [Concomitant]
     Route: 065
     Dates: start: 20080813, end: 20080826
  5. ATENOLOL [Concomitant]
     Route: 065
  6. CHLOROQUINE [Concomitant]
     Route: 065
     Dates: start: 20090123
  7. MARAVIROC [Concomitant]
     Indication: ANTIRETROVIRAL THERAPY
     Route: 065
     Dates: start: 20080911
  8. MARAVIROC [Concomitant]
     Route: 065
     Dates: start: 20080813, end: 20080826
  9. GANCICLOVIR [Concomitant]
     Indication: ANTIRETROVIRAL THERAPY
     Route: 065
     Dates: start: 20080911, end: 20081205
  10. ENFUVIRTIDE [Concomitant]
     Indication: ANTIRETROVIRAL THERAPY
     Route: 065
     Dates: start: 20080813, end: 20080826

REACTIONS (3)
  - ABDOMINAL PAIN [None]
  - LIVER DISORDER [None]
  - PORPHYRIA NON-ACUTE [None]
